FAERS Safety Report 12537574 (Version 2)
Quarter: 2016Q3

REPORT INFORMATION
  Report Type: Report from Study
  Country: JP (occurrence: JP)
  Receive Date: 20160707
  Receipt Date: 20160801
  Transmission Date: 20161109
  Serious: No
  Sender: FDA-Public Use
  Company Number: JP-EISAI MEDICAL RESEARCH-EC-2016-018274

PATIENT
  Age: 64 Year
  Sex: Female
  Weight: 64 kg

DRUGS (12)
  1. HALAVEN [Suspect]
     Active Substance: ERIBULIN MESYLATE
     Route: 041
     Dates: start: 20160421
  2. DECADRON [Concomitant]
     Active Substance: DEXAMETHASONE
  3. MYSLEE [Concomitant]
     Active Substance: ZOLPIDEM TARTRATE
  4. LASIX [Concomitant]
     Active Substance: FUROSEMIDE
  5. LENDORMIN D [Concomitant]
     Active Substance: BROTIZOLAM
  6. ROHYPNOL [Concomitant]
     Active Substance: FLUNITRAZEPAM
  7. ALDACTONE A [Concomitant]
     Active Substance: SPIRONOLACTONE
  8. MAGMITT [Concomitant]
     Active Substance: MAGNESIUM OXIDE
  9. CALCIUM LACTATE HYDRATE [Concomitant]
     Active Substance: CALCIUM LACTATE
  10. ONEALFA [Concomitant]
     Active Substance: ALFACALCIDOL
  11. NAUZELIN [Concomitant]
     Active Substance: DOMPERIDONE
  12. HALAVEN [Suspect]
     Active Substance: ERIBULIN MESYLATE
     Indication: INVASIVE DUCTAL BREAST CARCINOMA
     Route: 041
     Dates: start: 20151105, end: 20160407

REACTIONS (1)
  - Blood lactate dehydrogenase increased [Recovered/Resolved]

NARRATIVE: CASE EVENT DATE: 20160128
